FAERS Safety Report 6423828-5 (Version None)
Quarter: 2009Q4

REPORT INFORMATION
  Report Type: 
  Country: None (occurrence: None)
  Receive Date: 20091102
  Receipt Date: 20091021
  Transmission Date: 20100525
  Serious: Yes (Other)
  Sender: FDA-Public Use
  Company Number: US-PFIZER INC-2009256999

PATIENT
  Sex: Male

DRUGS (1)
  1. SUTENT [Suspect]
     Indication: METASTATIC RENAL CELL CARCINOMA
     Dosage: 37.5 MG, ALTERNATE DAY
     Dates: start: 20081112, end: 20091015

REACTIONS (2)
  - DYSPNOEA [None]
  - PULMONARY OEDEMA [None]
